FAERS Safety Report 10451150 (Version 1)
Quarter: 2014Q3

REPORT INFORMATION
  Report Type: Spontaneous
  Country: US (occurrence: US)
  Receive Date: 20140912
  Receipt Date: 20140912
  Transmission Date: 20150326
  Serious: Yes (Other)
  Sender: FDA-Public Use
  Company Number: CHPA2014US011956

PATIENT
  Sex: Female

DRUGS (3)
  1. PRIVATE LABEL STEP 1 21MG ACCT UNKNOWN [Suspect]
     Active Substance: NICOTINE
     Route: 065
  2. PRIVATE LABEL STEP 3 7MG ACCT UNKNOWN [Suspect]
     Active Substance: NICOTINE
     Dosage: UNK
     Route: 065
  3. NICOTINE TRANSDERMAL SYSTEM STEP 2 [Suspect]
     Active Substance: NICOTINE
     Dosage: UNK
     Route: 062

REACTIONS (2)
  - Withdrawal syndrome [Not Recovered/Not Resolved]
  - Incorrect drug administration duration [Unknown]
